FAERS Safety Report 22124634 (Version 1)
Quarter: 2023Q1

REPORT INFORMATION
  Report Type: Spontaneous
  Country: DE (occurrence: None)
  Receive Date: 20230322
  Receipt Date: 20230322
  Transmission Date: 20230417
  Serious: Yes (Hospitalization)
  Sender: FDA-Public Use
  Company Number: 2023A064950

PATIENT
  Age: 61 Year
  Sex: Female

DRUGS (4)
  1. CILGAVIMAB\TIXAGEVIMAB [Suspect]
     Active Substance: CILGAVIMAB\TIXAGEVIMAB
     Route: 030
     Dates: start: 20220411
  2. RITUXIMAB [Concomitant]
     Active Substance: RITUXIMAB
     Dosage: IN VARYING DOSES, INTERMITTENTLY IN COMBINATION WITH MTX, 1000 MG EVERY 6 MONTHS
     Dates: start: 201411
  3. RITUXIMAB [Concomitant]
     Active Substance: RITUXIMAB
     Dosage: 1000 MG
     Dates: start: 202209
  4. COVID-19 VACCINE MRNA [Concomitant]
     Dosage: 5TH VACCINATION
     Dates: start: 202205

REACTIONS (1)
  - COVID-19 [Unknown]

NARRATIVE: CASE EVENT DATE: 20220921
